FAERS Safety Report 19814680 (Version 1)
Quarter: 2021Q3

REPORT INFORMATION
  Report Type: Spontaneous
  Country: US (occurrence: US)
  Receive Date: 20210907
  Receipt Date: 20210907
  Transmission Date: 20211014
  Serious: No
  Sender: FDA-Public Use
  Company Number: None

PATIENT
  Age: 80 Year
  Sex: Male
  Weight: 74 kg

DRUGS (1)
  1. AMLODIPINE (AMLODIPINE BESYLATE 5MG TAB) [Suspect]
     Active Substance: AMLODIPINE BESYLATE
     Indication: HYPERTENSION
     Route: 048
     Dates: start: 20200214, end: 20210423

REACTIONS (4)
  - Swelling [None]
  - Dizziness [None]
  - Oedema peripheral [None]
  - Hypersensitivity [None]

NARRATIVE: CASE EVENT DATE: 20210422
